FAERS Safety Report 14099765 (Version 1)
Quarter: 2017Q4

REPORT INFORMATION
  Report Type: Report from Study
  Country: US (occurrence: US)
  Receive Date: 20171017
  Receipt Date: 20171017
  Transmission Date: 20180321
  Serious: Yes (Hospitalization, Other)
  Sender: FDA-Public Use
  Company Number: US-BAYER-2017-152879

PATIENT
  Age: 54 Year
  Sex: Female

DRUGS (3)
  1. STIVARGA [Suspect]
     Active Substance: REGORAFENIB
     Indication: COLON CANCER
     Dosage: DAILY DOSE 160 MG
     Route: 048
     Dates: start: 20170710, end: 2017
  2. STIVARGA [Suspect]
     Active Substance: REGORAFENIB
     Indication: COLON CANCER
     Dosage: DAILY DOSE 80 MG, TAKING EVERY TABLET FOR 6 HOURS
     Route: 048
     Dates: start: 20170829
  3. STIVARGA [Suspect]
     Active Substance: REGORAFENIB
     Indication: COLON CANCER
     Dosage: 80 MG, QD
     Route: 048
     Dates: end: 201709

REACTIONS (12)
  - Blister [None]
  - Palmar-plantar erythrodysaesthesia syndrome [None]
  - Diarrhoea [None]
  - Vomiting [None]
  - Decreased appetite [None]
  - Hypoaesthesia [None]
  - Weight decreased [None]
  - Skin fissures [None]
  - Pain in extremity [None]
  - Dehydration [None]
  - Pain in extremity [Recovering/Resolving]
  - Inappropriate schedule of drug administration [None]

NARRATIVE: CASE EVENT DATE: 201708
